FAERS Safety Report 5920156-9 (Version None)
Quarter: 2008Q4

REPORT INFORMATION
  Report Type: 
  Country: None (occurrence: None)
  Receive Date: 20081016
  Receipt Date: 20081006
  Transmission Date: 20090506
  Serious: Yes (Other)
  Sender: FDA-Public Use
  Company Number: DE-JNJFOC-20081001283

PATIENT
  Age: 45 Year
  Sex: Female

DRUGS (1)
  1. TAVANIC [Suspect]
     Indication: FOOD POISONING
     Route: 048

REACTIONS (5)
  - ARTHRALGIA [None]
  - HAEMATOMA [None]
  - INFLAMMATION [None]
  - OEDEMA PERIPHERAL [None]
  - THROMBOSIS [None]
